FAERS Safety Report 8338823 (Version 6)
Quarter: 2014Q1

REPORT INFORMATION
  Report Type: Spontaneous
  Country: US (occurrence: US)
  Receive Date: 20120117
  Receipt Date: 20140122
  Transmission Date: 20141002
  Serious: Yes (Hospitalization, Disabling, Other)
  Sender: FDA-Public Use
  Company Number: US-B.I. PHARMACEUTICALS,INC./RIDGEFIELD-2012-BP-00702BP

PATIENT
  Age: 55 Year
  Sex: Male
  Weight: 104.33 kg

DRUGS (15)
  1. PRADAXA [Suspect]
     Indication: ATRIAL FIBRILLATION
     Dosage: 300 MG
     Route: 048
     Dates: start: 20110222, end: 20110423
  2. PRADAXA [Suspect]
     Indication: ANTICOAGULANT THERAPY
  3. INSULIN [Concomitant]
     Indication: DIABETES MELLITUS
  4. INSULIN [Concomitant]
     Indication: BLOOD GLUCOSE INCREASED
  5. MULTIVITAMIN [Concomitant]
     Indication: VITAMIN SUPPLEMENTATION
  6. HYDROCODONE [Concomitant]
     Dates: start: 2003
  7. NOVOLOG INSULIN ASPART [Concomitant]
     Route: 058
     Dates: start: 2003
  8. TOPAMAX [Concomitant]
     Dosage: 200 MG
     Route: 048
     Dates: start: 2005
  9. ZOCOR [Concomitant]
     Dosage: 20 MG
     Route: 048
  10. ZESTRIL [Concomitant]
     Dosage: 10 MG
     Route: 048
  11. B12 [Concomitant]
  12. CALCIUM WITH D [Concomitant]
  13. ASPIRIN [Concomitant]
     Dosage: 300 MG
     Route: 048
  14. TYLENOL [Concomitant]
     Route: 054
  15. MEDICATION NOT FURTHER SPECIFIED [Concomitant]
     Indication: RENAL DISORDER

REACTIONS (7)
  - Cerebrovascular accident [Recovered/Resolved with Sequelae]
  - Cerebral haemorrhage [Unknown]
  - Infection [Not Recovered/Not Resolved]
  - Localised infection [Not Recovered/Not Resolved]
  - Fall [Recovered/Resolved]
  - Disturbance in attention [Not Recovered/Not Resolved]
  - Joint contracture [Recovered/Resolved]
